FAERS Safety Report 17850037 (Version 1)
Quarter: 2020Q2

REPORT INFORMATION
  Report Type: Spontaneous
  Country: US (occurrence: US)
  Receive Date: 20200602
  Receipt Date: 20200602
  Transmission Date: 20200714
  Serious: Yes (Death, Life-Threatening, Hospitalization, Disabling)
  Sender: FDA-Public Use
  Company Number: None

PATIENT
  Age: 76 Year
  Sex: Female
  Weight: 63 kg

DRUGS (6)
  1. DILAUDID [Concomitant]
     Active Substance: HYDROMORPHONE HYDROCHLORIDE
  2. YERVOY [Suspect]
     Active Substance: IPILIMUMAB
  3. PREDNISONE. [Concomitant]
     Active Substance: PREDNISONE
  4. STOOL SOFTENER (DOCUSATE) [Concomitant]
     Active Substance: DOCUSATE
  5. OPDIVO [Suspect]
     Active Substance: NIVOLUMAB
     Indication: METASTATIC MALIGNANT MELANOMA
  6. MORPHINE [Concomitant]
     Active Substance: MORPHINE

REACTIONS (10)
  - Oral pain [None]
  - Diarrhoea [None]
  - Hepatitis [None]
  - Nephritis [None]
  - Blister [None]
  - Facial paralysis [None]
  - Colitis [None]
  - Dehydration [None]
  - Pneumocystis jirovecii pneumonia [None]
  - Myalgia [None]

NARRATIVE: CASE EVENT DATE: 20190515
